FAERS Safety Report 6385937-9 (Version None)
Quarter: 2009Q4

REPORT INFORMATION
  Report Type: 
  Country: None (occurrence: None)
  Receive Date: 20091002
  Receipt Date: 20090224
  Transmission Date: 20100525
  Serious: No
  Sender: FDA-Public Use
  Company Number: US-ASTRAZENECA-2009UW00995

PATIENT
  Age: 58 Year
  Sex: Female
  Weight: 57.2 kg

DRUGS (2)
  1. ARIMIDEX [Suspect]
     Indication: BREAST CANCER FEMALE
     Route: 048
     Dates: start: 20080901
  2. PROTONIX [Concomitant]

REACTIONS (3)
  - ARTHRITIS [None]
  - OSTEOPOROSIS [None]
  - RAYNAUD'S PHENOMENON [None]
